FAERS Safety Report 11152994 (Version 3)
Quarter: 2015Q4

REPORT INFORMATION
  Report Type: Report from Study
  Country: TH (occurrence: TH)
  Receive Date: 20150601
  Receipt Date: 20151116
  Transmission Date: 20160304
  Serious: Yes (Hospitalization)
  Sender: FDA-Public Use
  Company Number: TH-ABBVIE-15P-155-1397779-00

PATIENT
  Age: 67 Year
  Sex: Male
  Weight: 69 kg

DRUGS (4)
  1. FOLIC ACID. [Concomitant]
     Active Substance: FOLIC ACID
     Indication: BLOOD HOMOCYSTEINE INCREASED
     Route: 048
     Dates: start: 20120420
  2. DUODOPA [Suspect]
     Active Substance: CARBIDOPA\LEVODOPA
     Indication: PARKINSON^S DISEASE
     Dosage: MD 5.5 CC, CD 8.7 CC/HR, ED 1.5
     Route: 050
  3. SERC [Concomitant]
     Active Substance: BETAHISTINE HYDROCHLORIDE
     Indication: DIZZINESS
     Route: 048
     Dates: start: 20121221
  4. VITAMIN B1-6-12 [Concomitant]
     Indication: VITAMIN B6 DEFICIENCY
     Dosage: UNIT DOSE 100/5/0.065; TOTAL DAILY DOSE 300/15/0.2
     Route: 048
     Dates: start: 20111202

REACTIONS (2)
  - Inguinal hernia [Recovered/Resolved]
  - Inflammation [Recovered/Resolved]

NARRATIVE: CASE EVENT DATE: 20150112
